FAERS Safety Report 25418094 (Version 1)
Quarter: 2025Q2

REPORT INFORMATION
  Report Type: Report from Study
  Country: US (occurrence: US)
  Receive Date: 20250610
  Receipt Date: 20250610
  Transmission Date: 20250717
  Serious: Yes (Other)
  Sender: ABBVIE
  Company Number: US-ABBVIE-5905447

PATIENT
  Age: 62 Year
  Sex: Female

DRUGS (1)
  1. HUMIRA [Suspect]
     Active Substance: ADALIMUMAB
     Indication: Rheumatoid arthritis
     Dosage: FORM STRENGTH: 40 MG
     Route: 058
     Dates: start: 2021, end: 202407

REACTIONS (3)
  - Liver injury [Recovering/Resolving]
  - Hepatic enzyme increased [Unknown]
  - Metabolic dysfunction-associated steatohepatitis [Unknown]

NARRATIVE: CASE EVENT DATE: 20220101
